FAERS Safety Report 24058176 (Version 4)
Quarter: 2024Q4

REPORT INFORMATION
  Report Type: Report from Study
  Country: US (occurrence: US)
  Receive Date: 20240708
  Receipt Date: 20241230
  Transmission Date: 20250115
  Serious: Yes (Hospitalization, Other)
  Sender: ABBVIE
  Company Number: US-ABBVIE-5822657

PATIENT
  Age: 62 Year
  Sex: Female
  Weight: 87.089 kg

DRUGS (2)
  1. CREON [Suspect]
     Active Substance: PANCRELIPASE AMYLASE\PANCRELIPASE LIPASE\PANCRELIPASE PROTEASE
     Indication: Pancreatic carcinoma
     Dosage: FREQUENCY : TWO CAPS EVERY MEAL, TWO CAPS EVERY SNACKS,?24000: DOSAGE FORM
     Route: 048
     Dates: start: 2014
  2. LEVOTHYROXINE [Concomitant]
     Active Substance: LEVOTHYROXINE
     Indication: Hypothyroidism

REACTIONS (12)
  - Fall [Recovering/Resolving]
  - Upper limb fracture [Recovering/Resolving]
  - Hip fracture [Recovering/Resolving]
  - Chest pain [Not Recovered/Not Resolved]
  - Acne [Not Recovered/Not Resolved]
  - Pancreatitis [Unknown]
  - Amnesia [Not Recovered/Not Resolved]
  - Abdominal pain [Not Recovered/Not Resolved]
  - Lower limb fracture [Recovering/Resolving]
  - Back pain [Not Recovered/Not Resolved]
  - Concussion [Not Recovered/Not Resolved]
  - Pancreatic failure [Unknown]

NARRATIVE: CASE EVENT DATE: 20140101
